FAERS Safety Report 5089460-3 (Version None)
Quarter: 2006Q3

REPORT INFORMATION
  Report Type: 
  Country: None (occurrence: None)
  Receive Date: 20060727
  Receipt Date: 20060510
  Transmission Date: 20061208
  Serious: Yes (Other)
  Sender: FDA-Public Use
  Company Number: 2006063384

PATIENT
  Age: 51 Year
  Sex: Female
  Weight: 117.9352 kg

DRUGS (14)
  1. LYRICA [Suspect]
     Indication: DIABETIC NEUROPATHY
     Dosage: 100 MG (50 MG, 2 IN 1 D), ORAL
     Route: 048
     Dates: start: 20060301
  2. GLUCOVANCE [Concomitant]
  3. IMDUR [Concomitant]
  4. MONOPRIL [Concomitant]
  5. LOPRESSOR [Concomitant]
  6. CARDURA [Concomitant]
  7. BUMEX [Concomitant]
  8. DARVOCET [Concomitant]
  9. FOSAMAX [Concomitant]
  10. DETROL LA [Concomitant]
  11. CALCIUM (CALCIUM) [Concomitant]
  12. MAGNESIUM (MAGNESIUM) [Concomitant]
  13. ASPIRIN [Concomitant]
  14. MULTIVITAMIN [Concomitant]

REACTIONS (4)
  - ARTHRITIS [None]
  - MYALGIA [None]
  - OSTEOARTHRITIS [None]
  - PAIN [None]
